FAERS Safety Report 8986048 (Version 1)
Quarter: 2012Q4

REPORT INFORMATION
  Report Type: Spontaneous
  Country: US (occurrence: None)
  Receive Date: 20121214
  Receipt Date: 20121214
  Transmission Date: 20130627
  Serious: Yes (Hospitalization)
  Sender: FDA-Public Use
  Company Number: DKLU1086935

PATIENT
  Age: 9 Year
  Sex: Female

DRUGS (3)
  1. SABRIL (FOR ORAL SOLUTION) (SABRIL) (VIGABATRIN) (500 MG, POWDER FOR ORAL SOLUTION) [Suspect]
     Indication: TONIC CONVULSION
     Route: 048
  2. KEPPRA (LEVETIRACETAM) [Concomitant]
  3. PYRIDOXINE (PYRIDOXINE) [Concomitant]

REACTIONS (3)
  - Central nervous system lesion [None]
  - Tuberous sclerosis [None]
  - Disease progression [None]
